FAERS Safety Report 5226183-1 (Version None)
Quarter: 2007Q1

REPORT INFORMATION
  Report Type: 
  Country: None (occurrence: None)
  Receive Date: 20070201
  Receipt Date: 20070124
  Transmission Date: 20070707
  Serious: Yes (Other)
  Sender: FDA-Public Use
  Company Number: BR-JNJFOC-20070107475

PATIENT
  Age: 14 Year
  Sex: Male
  Weight: 45 kg

DRUGS (3)
  1. REMICADE [Suspect]
  2. REMICADE [Suspect]
     Indication: JUVENILE ARTHRITIS
  3. METHOTREXATE [Concomitant]
     Route: 048

REACTIONS (4)
  - INFUSION RELATED REACTION [None]
  - NAUSEA [None]
  - PYREXIA [None]
  - VOMITING [None]
